FAERS Safety Report 20378377 (Version 1)
Quarter: 2022Q1

REPORT INFORMATION
  Report Type: Spontaneous
  Country: US (occurrence: US)
  Receive Date: 20220126
  Receipt Date: 20220126
  Transmission Date: 20220423
  Serious: No
  Sender: FDA-Public Use
  Company Number: US-CELGENE-USA-20220105292

PATIENT
  Sex: Male

DRUGS (2)
  1. POMALYST [Suspect]
     Active Substance: POMALIDOMIDE
     Indication: Non-Hodgkin^s lymphoma
     Dosage: 4 MILLIGRAM
     Route: 048
     Dates: start: 202111
  2. POMALYST [Suspect]
     Active Substance: POMALIDOMIDE
     Indication: Off label use

REACTIONS (1)
  - Non-Hodgkin^s lymphoma [Unknown]
